FAERS Safety Report 8954455 (Version 1)
Quarter: 2012Q4

REPORT INFORMATION
  Report Type: 
  Country: DE (occurrence: DE)
  Receive Date: 20121210
  Receipt Date: 20121210
  Transmission Date: 20130627
  Serious: Yes (Hospitalization)
  Sender: FDA-Public Use
  Company Number: DE-AMGEN-DEUSP2012077879

PATIENT
  Sex: Female

DRUGS (2)
  1. XGEVA [Suspect]
     Indication: MYELODYSPLASTIC SYNDROME
  2. BISPHOSPHONATES [Concomitant]

REACTIONS (2)
  - Hypocalcaemia [Unknown]
  - Drug interaction [Unknown]
